FAERS Safety Report 5692771-1 (Version None)
Quarter: 2008Q2

REPORT INFORMATION
  Report Type: 
  Country: None (occurrence: None)
  Receive Date: 20080401
  Receipt Date: 20080319
  Transmission Date: 20081010
  Serious: Yes (Death, Hospitalization)
  Sender: FDA-Public Use
  Company Number: 2007BI011700

PATIENT
  Age: 37 Year
  Sex: Female

DRUGS (16)
  1. AVONEX [Suspect]
     Indication: SECONDARY PROGRESSIVE MULTIPLE SCLEROSIS
     Dosage: 30 UG; QW; IM
     Route: 030
     Dates: start: 20070509, end: 20070509
  2. BETAFERON [Concomitant]
  3. FLUVOXAMINE MALEATE [Concomitant]
  4. TAKEPRON [Concomitant]
  5. TEGRETOL [Concomitant]
  6. MEVALOTIN [Concomitant]
  7. FERROMIA [Concomitant]
  8. PLETAL [Concomitant]
  9. KETAS [Concomitant]
  10. TRYPTANOL [Concomitant]
  11. RIVOTRIL [Concomitant]
  12. AMOBAN [Concomitant]
  13. ROHYPNOL [Concomitant]
  14. MAGMITT [Concomitant]
  15. YODEL-S [Concomitant]
  16. GABAPEN [Concomitant]

REACTIONS (2)
  - CARDIO-RESPIRATORY ARREST [None]
  - MULTIPLE SCLEROSIS RELAPSE [None]
